FAERS Safety Report 12070540 (Version 2)
Quarter: 2016Q1

REPORT INFORMATION
  Report Type: Spontaneous
  Country: US (occurrence: US)
  Receive Date: 20160211
  Receipt Date: 20160328
  Transmission Date: 20160526
  Serious: Yes (Other)
  Sender: FDA-Public Use
  Company Number: US-ALEXION PHARMACEUTICALS INC-A201600714

PATIENT
  Age: 8 Year
  Sex: Male
  Weight: 36.74 kg

DRUGS (1)
  1. SOLIRIS [Suspect]
     Active Substance: ECULIZUMAB
     Indication: HAEMOLYTIC URAEMIC SYNDROME
     Dosage: 900 MG, UNK
     Route: 042

REACTIONS (3)
  - Cough [Unknown]
  - Pyrexia [Unknown]
  - Pneumonia viral [Not Recovered/Not Resolved]

NARRATIVE: CASE EVENT DATE: 20160125
